FAERS Safety Report 16065891 (Version 2)
Quarter: 2019Q1

REPORT INFORMATION
  Report Type: Spontaneous
  Country: CN (occurrence: CN)
  Receive Date: 20190313
  Receipt Date: 20190330
  Transmission Date: 20190418
  Serious: Yes (Death, Other)
  Sender: FDA-Public Use
  Company Number: CN-ROCHE-2275757

PATIENT
  Age: 46 Year
  Sex: Male

DRUGS (6)
  1. CELLCEPT [Suspect]
     Active Substance: MYCOPHENOLATE MOFETIL\MYCOPHENOLATE MOFETIL HYDROCHLORIDE
     Indication: LIVER TRANSPLANT
     Route: 065
  2. TACROLIMUS. [Concomitant]
     Active Substance: TACROLIMUS
  3. BASILIXIMAB [Concomitant]
     Active Substance: BASILIXIMAB
     Route: 065
  4. IMMUNOGLOBULIN [Concomitant]
     Active Substance: HUMAN IMMUNOGLOBULIN G
     Dosage: 30 G/D
     Route: 065
  5. METHYLPREDNISOLONE. [Concomitant]
     Active Substance: METHYLPREDNISOLONE
     Route: 065
  6. METHYLPREDNISOLONE. [Concomitant]
     Active Substance: METHYLPREDNISOLONE
     Route: 041

REACTIONS (2)
  - Graft versus host disease [Unknown]
  - Pneumocystis jirovecii infection [Fatal]
